FAERS Safety Report 20721967 (Version 1)
Quarter: 2022Q2

REPORT INFORMATION
  Report Type: Spontaneous
  Country: US (occurrence: None)
  Receive Date: 20220418
  Receipt Date: 20220418
  Transmission Date: 20220720
  Serious: Yes (Other)
  Sender: FDA-Public Use
  Company Number: None

PATIENT
  Age: 60 Year
  Sex: Female
  Weight: 58.05 kg

DRUGS (8)
  1. TEPEZZA [Suspect]
     Active Substance: TEPROTUMUMAB-TRBW
     Indication: Endocrine ophthalmopathy
     Dates: start: 20211211, end: 20220324
  2. PROPYLTHIOURACI [Concomitant]
  3. ALPRAZOLAM [Concomitant]
  4. NASAL SPRAY FLONASE [Concomitant]
  5. VITAMIN D [Concomitant]
     Active Substance: VITAMIN D NOS
  6. VITAMIN K [Concomitant]
     Active Substance: PHYTONADIONE
  7. VITAMIN B [Concomitant]
     Active Substance: VITAMIN B
  8. VITAMIN C [Concomitant]
     Active Substance: ASCORBIC ACID

REACTIONS (5)
  - Memory impairment [None]
  - Confusional state [None]
  - Feeling abnormal [None]
  - Confusional state [None]
  - Amnesia [None]

NARRATIVE: CASE EVENT DATE: 20220411
